FAERS Safety Report 6372744-6 (Version None)
Quarter: 2009Q3

REPORT INFORMATION
  Report Type: 
  Country: None (occurrence: None)
  Receive Date: 20090924
  Receipt Date: 20081216
  Transmission Date: 20100115
  Serious: Yes (Hospitalization)
  Sender: FDA-Public Use
  Company Number: US-ASTRAZENECA-2008UW24613

PATIENT
  Sex: Female

DRUGS (6)
  1. SEROQUEL [Suspect]
     Indication: SCHIZOPHRENIA
     Route: 048
     Dates: start: 20021001, end: 20081201
  2. CELEXA [Concomitant]
     Indication: ANXIETY
     Dates: start: 20021001
  3. MELLARIL [Concomitant]
     Indication: PSYCHOTIC DISORDER
  4. PROLIXIN [Concomitant]
     Indication: PSYCHOTIC DISORDER
  5. ZYPREXA [Concomitant]
     Indication: PSYCHOTIC DISORDER
  6. RISPERDAL [Concomitant]
     Indication: PSYCHOTIC DISORDER
     Dates: start: 20020801

REACTIONS (1)
  - CATARACT [None]
